FAERS Safety Report 7881384-9 (Version None)
Quarter: 2011Q4

REPORT INFORMATION
  Report Type: 
  Country: None (occurrence: None)
  Receive Date: 20111101
  Receipt Date: 20110527
  Transmission Date: 20120403
  Serious: No
  Sender: FDA-Public Use
  Company Number: US-AMGEN-USASP2011027771

PATIENT
  Age: 54 Year
  Sex: Female

DRUGS (2)
  1. ENBREL [Suspect]
     Indication: PSORIATIC ARTHROPATHY
     Dosage: 50 MG, QWK
     Dates: start: 20100722, end: 20110504
  2. ENBREL [Suspect]
     Indication: PSORIASIS

REACTIONS (7)
  - EAR INFECTION [None]
  - NAUSEA [None]
  - VOMITING [None]
  - HEPATIC STEATOSIS [None]
  - ABDOMINAL PAIN UPPER [None]
  - CONSTIPATION [None]
  - SINUSITIS [None]
